FAERS Safety Report 5465516-8 (Version None)
Quarter: 2007Q3

REPORT INFORMATION
  Report Type: 
  Country: None (occurrence: None)
  Receive Date: 20070924
  Receipt Date: 20020207
  Transmission Date: 20080115
  Serious: Yes (Death, Hospitalization)
  Sender: FDA-Public Use
  Company Number: ES-PFIZER INC-2006117421

PATIENT
  Sex: Male

DRUGS (5)
  1. IRINOTECAN HCL [Suspect]
     Indication: GASTRIC CANCER
     Dosage: DAILY DOSE:80MG/M2-FREQ:ONCE
     Route: 042
     Dates: start: 20020128, end: 20020128
  2. FLUOROURACIL [Suspect]
     Indication: GASTRIC CANCER
     Dosage: DAILY DOSE:2000MG/M2-FREQ:ONCE
     Route: 042
     Dates: start: 20020128, end: 20020128
  3. FOLINIC ACID [Suspect]
     Indication: GASTRIC CANCER
     Dosage: DAILY DOSE:520MG/M2-FREQ:ONCE
     Route: 042
     Dates: start: 20020128, end: 20020128
  4. METOCLOPRAMIDE [Concomitant]
  5. TRAMADOL HCL [Concomitant]

REACTIONS (5)
  - ASTHENIA [None]
  - DISEASE PROGRESSION [None]
  - GASTRIC CANCER [None]
  - ODYNOPHAGIA [None]
  - VOMITING [None]
